FAERS Safety Report 9268749 (Version 1)
Quarter: 2013Q2

REPORT INFORMATION
  Report Type: Spontaneous
  Country: US (occurrence: US)
  Receive Date: 20130502
  Receipt Date: 20130502
  Transmission Date: 20140414
  Serious: No
  Sender: FDA-Public Use
  Company Number: US-ALEXION-A201300094

PATIENT
  Age: 63 Year
  Sex: Male

DRUGS (4)
  1. SOLIRIS 300MG [Suspect]
     Indication: PAROXYSMAL NOCTURNAL HAEMOGLOBINURIA
     Dosage: UNK
     Route: 042
  2. ATENOLOL [Concomitant]
     Indication: PROPHYLAXIS
     Dosage: 50 MG, UNK
  3. LEVOTHYROXINE [Concomitant]
     Indication: THYROID DISORDER
     Dosage: 75 MCG, UNK
  4. TERAZOSIN [Concomitant]
     Indication: BENIGN PROSTATIC HYPERPLASIA
     Dosage: 10 MG, UNK

REACTIONS (3)
  - Vasodilatation [Unknown]
  - Flushing [Unknown]
  - Headache [Recovered/Resolved]
